FAERS Safety Report 20108677 (Version 3)
Quarter: 2021Q4

REPORT INFORMATION
  Report Type: Report from Study
  Country: US (occurrence: US)
  Receive Date: 20211124
  Receipt Date: 20211208
  Transmission Date: 20220303
  Serious: Yes (Hospitalization)
  Sender: FDA-Public Use
  Company Number: US-JNJFOC-20211142672

PATIENT
  Age: 23 Year
  Sex: Male
  Weight: 66.1 kg

DRUGS (8)
  1. INFLIXIMAB [Suspect]
     Active Substance: INFLIXIMAB
     Indication: Crohn^s disease
     Route: 042
     Dates: start: 20020702, end: 20020812
  2. INFLIXIMAB [Suspect]
     Active Substance: INFLIXIMAB
     Route: 042
     Dates: start: 20120503, end: 20140306
  3. FLONASE [Concomitant]
     Active Substance: FLUTICASONE PROPIONATE
  4. DESOWEN [Concomitant]
     Active Substance: DESONIDE
  5. CHOLESTYRAMINE [Concomitant]
     Active Substance: CHOLESTYRAMINE
  6. STELARA [Concomitant]
     Active Substance: USTEKINUMAB
     Dates: start: 20140329, end: 20180420
  7. STELARA [Concomitant]
     Active Substance: USTEKINUMAB
     Dates: end: 20201023
  8. NIZORAL [Concomitant]
     Active Substance: KETOCONAZOLE

REACTIONS (1)
  - Rhinovirus infection [Recovered/Resolved]

NARRATIVE: CASE EVENT DATE: 20211114
